FAERS Safety Report 25100148 (Version 1)
Quarter: 2025Q1

REPORT INFORMATION
  Report Type: Spontaneous
  Country: US (occurrence: US)
  Receive Date: 20250320
  Receipt Date: 20250320
  Transmission Date: 20250408
  Serious: No
  Sender: TEVA
  Company Number: US-TEVA-VS-3307832

PATIENT
  Age: 23 Year
  Sex: Male

DRUGS (1)
  1. UZEDY [Suspect]
     Active Substance: RISPERIDONE
     Indication: Product used for unknown indication
     Route: 065

REACTIONS (4)
  - Salivary hypersecretion [Unknown]
  - Epistaxis [Unknown]
  - Muscle spasms [Unknown]
  - Muscle rigidity [Unknown]
